FAERS Safety Report 12248243 (Version 3)
Quarter: 2016Q2

REPORT INFORMATION
  Report Type: Report from Study
  Country: CA (occurrence: CA)
  Receive Date: 20160408
  Receipt Date: 20160427
  Transmission Date: 20160815
  Serious: Yes (Other)
  Sender: FDA-Public Use
  Company Number: CA-ROCHE-1739120

PATIENT
  Age: 46 Year
  Sex: Female

DRUGS (8)
  1. RITUXAN [Suspect]
     Active Substance: RITUXIMAB
     Indication: PEMPHIGUS
     Dosage: DAY 1, DAY 15
     Route: 042
     Dates: start: 20160406
  2. PREDNISONE. [Concomitant]
     Active Substance: PREDNISONE
  3. KEFLEX [Concomitant]
     Active Substance: CEPHALEXIN
  4. IMURAN [Concomitant]
     Active Substance: AZATHIOPRINE
  5. ACETAMINOPHEN. [Concomitant]
     Active Substance: ACETAMINOPHEN
     Route: 048
     Dates: start: 20160406
  6. VITAMIN B12 [Concomitant]
     Active Substance: CYANOCOBALAMIN
  7. DIPHENHYDRAMINE HYDROCHLORIDE. [Concomitant]
     Active Substance: DIPHENHYDRAMINE HYDROCHLORIDE
     Route: 048
     Dates: start: 20160406
  8. METHYLPREDNISOLONE. [Concomitant]
     Active Substance: METHYLPREDNISOLONE
     Route: 042
     Dates: start: 20160406

REACTIONS (5)
  - Dry mouth [Recovered/Resolved]
  - Dysphagia [Recovered/Resolved]
  - Oropharyngeal pain [Recovered/Resolved]
  - Blood pressure systolic decreased [Unknown]
  - Furuncle [Unknown]

NARRATIVE: CASE EVENT DATE: 20160406
